FAERS Safety Report 25889588 (Version 1)
Quarter: 2025Q4

REPORT INFORMATION
  Report Type: Spontaneous
  Country: TN (occurrence: TN)
  Receive Date: 20251007
  Receipt Date: 20251007
  Transmission Date: 20260118
  Serious: Yes (Other)
  Sender: ACCORD
  Company Number: TN-MLMSERVICE-20250915-PI646371-00095-1

PATIENT
  Age: 57 Year
  Sex: Female

DRUGS (1)
  1. HYDROXYCHLOROQUINE [Suspect]
     Active Substance: HYDROXYCHLOROQUINE
     Indication: Systemic lupus erythematosus
     Dosage: 6.51 MG/ KG/DAY

REACTIONS (1)
  - Maculopathy [Unknown]
